FAERS Safety Report 6024290-7 (Version None)
Quarter: 2008Q4

REPORT INFORMATION
  Report Type: 
  Country: None (occurrence: None)
  Receive Date: 20081224
  Receipt Date: 20081214
  Transmission Date: 20090506
  Serious: Yes (Other)
  Sender: FDA-Public Use
  Company Number: 1000003252

PATIENT
  Age: 43 Year
  Sex: Male
  Weight: 85 kg

DRUGS (3)
  1. CITALOPRAM HYDROBROMIDE [Suspect]
     Dosage: 800 MG, ONCE, ORAL
     Route: 048
     Dates: start: 20081212, end: 20081212
  2. FLURAZEPAM [Suspect]
     Dosage: 600 MG, ONCE, ORAL
     Route: 048
     Dates: start: 20081212, end: 20081212
  3. TRIMIPRAMIN (100 MILLIGRAM, TABLETS) [Suspect]
     Dosage: 8500 MG, ONCE, ORAL
     Route: 048
     Dates: start: 20081212, end: 20081212

REACTIONS (3)
  - COMA [None]
  - INTENTIONAL OVERDOSE [None]
  - SUICIDE ATTEMPT [None]
